FAERS Safety Report 9599320 (Version 1)
Quarter: 2013Q4

REPORT INFORMATION
  Report Type: Spontaneous
  Country: US (occurrence: US)
  Receive Date: 20131004
  Receipt Date: 20131004
  Transmission Date: 20140711
  Serious: No
  Sender: FDA-Public Use
  Company Number: US-AMGEN-USASP2013029034

PATIENT
  Age: 51 Year
  Sex: Male
  Weight: 126.98 kg

DRUGS (8)
  1. ENBREL [Suspect]
     Indication: RHEUMATOID ARTHRITIS
     Dosage: 50 MG, QWK
     Route: 058
     Dates: start: 200601, end: 200910
  2. ZOCOR [Concomitant]
     Dosage: 40 MG, UNK
  3. MICARDIS [Concomitant]
     Dosage: 80 MG, UNK
  4. DICLOFENAC [Concomitant]
     Dosage: 50 MG, UNK, ENTERIC COATED
  5. SIMVASTATIN [Concomitant]
     Dosage: 10 MG, UNK
  6. FOLIC ACID [Concomitant]
     Dosage: UNK
  7. ACETAMINOPHEN PM [Concomitant]
     Dosage: 25-500 MG
  8. HUMIRA [Concomitant]
     Dosage: UNK

REACTIONS (2)
  - Drug effect decreased [Unknown]
  - Injection site pain [Recovered/Resolved]
